FAERS Safety Report 5338781-5 (Version None)
Quarter: 2007Q2

REPORT INFORMATION
  Report Type: 
  Country: None (occurrence: None)
  Receive Date: 20070530
  Receipt Date: 20060727
  Transmission Date: 20071010
  Serious: Yes (Hospitalization)
  Sender: FDA-Public Use
  Company Number: JP-ROCHE-457313

PATIENT
  Age: 68 Year
  Sex: Male
  Weight: 46.9 kg

DRUGS (3)
  1. PERDIPINE [Suspect]
     Indication: BLOOD PRESSURE MANAGEMENT
     Dosage: DURATION:14 HRS 55 MIN: 24 JULY 2006, 1.35 P.M. 2.0 ML/HR, 2:00 P.M. INCREASED TO 3.0 ML/HR, 5:00 P+
     Route: 041
     Dates: start: 20060724, end: 20060725
  2. ATROPINE SULFATE [Suspect]
     Indication: DRUG USE FOR UNKNOWN INDICATION
     Route: 030
     Dates: start: 20060724, end: 20060724
  3. CLARITHROMYCIN [Concomitant]
     Dates: start: 20060718, end: 20060721

REACTIONS (1)
  - ILEUS PARALYTIC [None]
